FAERS Safety Report 13444754 (Version 3)
Quarter: 2017Q2

REPORT INFORMATION
  Report Type: Report from Study
  Country: US (occurrence: US)
  Receive Date: 20170414
  Receipt Date: 20170504
  Transmission Date: 20170830
  Serious: Yes (Hospitalization, Other)
  Sender: FDA-Public Use
  Company Number: US-ALEXION-A201703630

PATIENT
  Sex: Female

DRUGS (1)
  1. SOLIRIS [Suspect]
     Active Substance: ECULIZUMAB
     Indication: HAEMOLYTIC URAEMIC SYNDROME
     Dosage: 900 MG, QW
     Route: 042
     Dates: start: 20170331, end: 20170331

REACTIONS (5)
  - Myositis [Not Recovered/Not Resolved]
  - Neoplasm [Unknown]
  - Mass [Unknown]
  - Renal impairment [Not Recovered/Not Resolved]
  - Rheumatic disorder [Unknown]
